FAERS Safety Report 6126175-4 (Version None)
Quarter: 2009Q1

REPORT INFORMATION
  Report Type: 
  Country: None (occurrence: None)
  Receive Date: 20090320
  Receipt Date: 20090317
  Transmission Date: 20090719
  Serious: Yes (Other)
  Sender: FDA-Public Use
  Company Number: B0559203A

PATIENT
  Age: 17 Year
  Sex: Female

DRUGS (4)
  1. RELENZA [Suspect]
     Indication: INFLUENZA
     Dosage: 10MG TWICE PER DAY
     Route: 055
     Dates: start: 20090125, end: 20090127
  2. KLARICID [Concomitant]
     Route: 048
  3. ASVERIN [Concomitant]
     Route: 048
  4. HOKUNALIN [Concomitant]
     Route: 062

REACTIONS (7)
  - ALTERED STATE OF CONSCIOUSNESS [None]
  - DISSOCIATION [None]
  - ELECTROENCEPHALOGRAM ABNORMAL [None]
  - FEELING ABNORMAL [None]
  - HEADACHE [None]
  - NYSTAGMUS [None]
  - VISION BLURRED [None]
